FAERS Safety Report 8805527 (Version 2)
Quarter: 2013Q1

REPORT INFORMATION
  Report Type: Spontaneous
  Country: US (occurrence: US)
  Receive Date: 20120924
  Receipt Date: 20130116
  Transmission Date: 20140127
  Serious: Yes (Hospitalization)
  Sender: FDA-Public Use
  Company Number: US-ASTRAZENECA-2012SE72068

PATIENT
  Age: 37 Year
  Sex: Female

DRUGS (3)
  1. PULMICORT FLEXHALER [Suspect]
     Route: 055
  2. SYMBICORT PMDI [Suspect]
     Indication: ASTHMA
     Route: 055
  3. SINGULAIR [Concomitant]

REACTIONS (4)
  - Pneumonia [Unknown]
  - Adverse event [Unknown]
  - Asthma [Unknown]
  - Dyspnoea [Unknown]
